FAERS Safety Report 17500576 (Version 1)
Quarter: 2020Q1

REPORT INFORMATION
  Report Type: Spontaneous
  Country: US (occurrence: US)
  Receive Date: 20200224
  Receipt Date: 20200224
  Transmission Date: 20200409
  Serious: Yes (Other)
  Sender: FDA-Public Use
  Company Number: None

PATIENT
  Age: 72 Year
  Sex: Female
  Weight: 47.63 kg

DRUGS (2)
  1. AUGMENTIN [Suspect]
     Active Substance: AMOXICILLIN\CLAVULANATE POTASSIUM
  2. GENERIC TAMIFLU (OSELTAMIVIR PHOSPHATE) 75 MG [Suspect]
     Active Substance: OSELTAMIVIR PHOSPHATE
     Indication: INFLUENZA
     Route: 048
     Dates: start: 20200206, end: 20200210

REACTIONS (30)
  - Nausea [None]
  - Abdominal distension [None]
  - Confusional state [None]
  - Drug hypersensitivity [None]
  - Neurological symptom [None]
  - Cognitive disorder [None]
  - Pain [None]
  - Cough [None]
  - Laryngitis [None]
  - Nasal congestion [None]
  - Diarrhoea [None]
  - Bacterial infection [None]
  - Dehydration [None]
  - Gastric disorder [None]
  - Headache [None]
  - Insomnia [None]
  - Pneumonia [None]
  - Disturbance in attention [None]
  - Dizziness [None]
  - Eye irritation [None]
  - Delirium [None]
  - Mania [None]
  - Pyrexia [None]
  - Chills [None]
  - Fatigue [None]
  - White blood cell count increased [None]
  - Blood sodium decreased [None]
  - Agitation [None]
  - Asthenia [None]
  - Anxiety [None]

NARRATIVE: CASE EVENT DATE: 20200205
